FAERS Safety Report 10692941 (Version 1)
Quarter: 2015Q1

REPORT INFORMATION
  Report Type: Spontaneous
  Country: US (occurrence: None)
  Receive Date: 20150105
  Receipt Date: 20150105
  Transmission Date: 20150720
  Serious: Yes (Life-Threatening, Hospitalization)
  Sender: FDA-Public Use
  Company Number: None

PATIENT
  Age: 64 Year
  Sex: Male
  Weight: 101.4 kg

DRUGS (2)
  1. ADENOSINE. [Suspect]
     Active Substance: ADENOSINE
     Indication: ARRHYTHMIA
     Dates: start: 20141130, end: 20141130
  2. THEOPHYLLINE [Suspect]
     Active Substance: THEOPHYLLINE ANHYDROUS
     Indication: ASTHMA
     Route: 048
     Dates: start: 20011126, end: 20141130

REACTIONS (4)
  - Acute respiratory failure [None]
  - Asthma [None]
  - Tachycardia [None]
  - Supraventricular tachycardia [None]

NARRATIVE: CASE EVENT DATE: 20141130
